FAERS Safety Report 16086474 (Version 2)
Quarter: 2019Q2

REPORT INFORMATION
  Report Type: Spontaneous
  Country: US (occurrence: US)
  Receive Date: 20190318
  Receipt Date: 20190403
  Transmission Date: 20190711
  Serious: No
  Sender: FDA-Public Use
  Company Number: US-LUNDBECK-DKLU2062004

PATIENT
  Age: 56 Year
  Sex: Male

DRUGS (1)
  1. NORTHERA [Suspect]
     Active Substance: DROXIDOPA
     Indication: AUTONOMIC NERVOUS SYSTEM IMBALANCE
     Route: 048
     Dates: start: 201903

REACTIONS (6)
  - Musculoskeletal stiffness [Unknown]
  - Limb discomfort [Unknown]
  - Blood pressure increased [Unknown]
  - Muscular weakness [Unknown]
  - Supine hypertension [Unknown]
  - Agitation [Unknown]

NARRATIVE: CASE EVENT DATE: 20190328
